FAERS Safety Report 25185646 (Version 1)
Quarter: 2025Q2

REPORT INFORMATION
  Report Type: Spontaneous
  Country: FR (occurrence: FR)
  Receive Date: 20250410
  Receipt Date: 20250410
  Transmission Date: 20250717
  Serious: Yes (Hospitalization)
  Sender: MYLAN
  Company Number: None

PATIENT
  Age: 27 Year
  Sex: Female
  Weight: 100 kg

DRUGS (9)
  1. VANCOMYCIN [Suspect]
     Active Substance: VANCOMYCIN
     Indication: Bacteraemia
     Dates: start: 20240903, end: 20240915
  2. CASPOFUNGIN [Suspect]
     Active Substance: CASPOFUNGIN
     Indication: Fungaemia
     Dates: start: 20240830, end: 20240911
  3. LOVENOX [Concomitant]
     Active Substance: ENOXAPARIN SODIUM
  4. MIDAZOLAM [Concomitant]
     Active Substance: MIDAZOLAM
  5. SUFENTANIL [Concomitant]
     Active Substance: SUFENTANIL
  6. LACOSAMIDE [Concomitant]
     Active Substance: LACOSAMIDE
  7. KEPPRA [Concomitant]
     Active Substance: LEVETIRACETAM
  8. PROPRANOLOL [Concomitant]
     Active Substance: PROPRANOLOL HYDROCHLORIDE
  9. NIMBEX [Concomitant]
     Active Substance: CISATRACURIUM BESYLATE

REACTIONS (1)
  - Cholestasis [Recovered/Resolved]

NARRATIVE: CASE EVENT DATE: 20240906
